FAERS Safety Report 9008388 (Version 1)
Quarter: 2013Q1

REPORT INFORMATION
  Report Type: Spontaneous
  Country: US (occurrence: US)
  Receive Date: 20130111
  Receipt Date: 20130111
  Transmission Date: 20140127
  Serious: Yes (Other)
  Sender: FDA-Public Use
  Company Number: PHEH2013US000769

PATIENT
  Sex: Male

DRUGS (4)
  1. DIOVAN [Suspect]
     Dosage: 1 DF, (80 MG) QD
  2. DIOVAN HCT [Suspect]
     Dosage: 1 DF, (160/25 MG) QD
  3. DILTIAZEM [Suspect]
     Dosage: 1 DF, (120 MG) QD
  4. DIAZEPAM [Suspect]
     Dosage: 5 MG, PRN

REACTIONS (4)
  - Loss of consciousness [Unknown]
  - Anxiety [Unknown]
  - Blood pressure increased [Unknown]
  - Diarrhoea [Unknown]
